FAERS Safety Report 9823214 (Version 2)
Quarter: 2014Q1

REPORT INFORMATION
  Report Type: Spontaneous
  Country: US (occurrence: US)
  Receive Date: 20140116
  Receipt Date: 20140116
  Transmission Date: 20141002
  Serious: Yes (Other)
  Sender: FDA-Public Use
  Company Number: US-GILEAD-2011-0036127

PATIENT
  Sex: Male
  Weight: 86.64 kg

DRUGS (17)
  1. LETAIRIS [Suspect]
     Indication: PULMONARY HYPERTENSION
     Route: 048
     Dates: start: 20110119, end: 20110131
  2. LETAIRIS [Suspect]
     Indication: HEART DISEASE CONGENITAL
  3. LETAIRIS [Suspect]
     Indication: ATRIAL TACHYCARDIA
  4. ADCIRCA [Concomitant]
  5. LISINOPRIL [Concomitant]
  6. METOPROLOL TARTRATE [Concomitant]
  7. ALDACTONE [Concomitant]
  8. ASPIRIN [Concomitant]
  9. LASIX [Concomitant]
  10. ZOCOR [Concomitant]
  11. CHOLESTOFF [Concomitant]
  12. ADVAIR DISKUS [Concomitant]
  13. VENTOLIN [Concomitant]
  14. OXYGEN [Concomitant]
  15. TRAMADOL [Concomitant]
  16. LORAZEPAM [Concomitant]
  17. VITAMIN D [Concomitant]

REACTIONS (4)
  - Swollen tongue [Recovered/Resolved]
  - Paraesthesia oral [Recovered/Resolved]
  - Blood pressure increased [Recovered/Resolved]
  - Joint swelling [Unknown]
